FAERS Safety Report 9613618 (Version 1)
Quarter: 2013Q4

REPORT INFORMATION
  Report Type: Spontaneous
  Country: US (occurrence: US)
  Receive Date: 20131010
  Receipt Date: 20131010
  Transmission Date: 20140711
  Serious: No
  Sender: FDA-Public Use
  Company Number: US-TEVA-384447USA

PATIENT
  Sex: Female

DRUGS (1)
  1. SEASONALE [Suspect]
     Indication: MENSTRUAL CYCLE MANAGEMENT
     Dates: start: 201110

REACTIONS (2)
  - Metrorrhagia [Not Recovered/Not Resolved]
  - Off label use [Unknown]
